FAERS Safety Report 13195832 (Version 2)
Quarter: 2017Q1

REPORT INFORMATION
  Report Type: Report from Study
  Country: AR (occurrence: AR)
  Receive Date: 20170208
  Receipt Date: 20170227
  Transmission Date: 20170428
  Serious: Yes (Hospitalization, Disabling, Other)
  Sender: FDA-Public Use
  Company Number: PHHY2017AR001219

PATIENT
  Sex: Female

DRUGS (2)
  1. RIVAROXABAN [Suspect]
     Active Substance: RIVAROXABAN
     Indication: ATRIAL FIBRILLATION
     Route: 065
  2. EXFORGE [Suspect]
     Active Substance: AMLODIPINE BESYLATE\VALSARTAN
     Indication: HYPERTENSION
     Dosage: 1 DF (AMLODIPINE 5, VALSARTAN 160), QD
     Route: 065

REACTIONS (11)
  - Platelet count decreased [Recovered/Resolved]
  - Visual impairment [Unknown]
  - Heart rate decreased [Recovered/Resolved]
  - Retinal vascular disorder [Unknown]
  - Cataract [Unknown]
  - Purpura [Recovering/Resolving]
  - Blood pressure increased [Recovered/Resolved]
  - Anxiety [Unknown]
  - Blood pressure fluctuation [Unknown]
  - Maculopathy [Unknown]
  - Atrial fibrillation [Unknown]
